FAERS Safety Report 7366373-5 (Version None)
Quarter: 2011Q1

REPORT INFORMATION
  Report Type: 
  Country: None (occurrence: None)
  Receive Date: 20110317
  Receipt Date: 20110317
  Transmission Date: 20110831
  Serious: Yes (Hospitalization)
  Sender: FDA-Public Use
  Company Number: None

PATIENT
  Age: 20 Year
  Sex: Female

DRUGS (3)
  1. PREDNISONE BURST [Concomitant]
  2. NUVARING [Suspect]
     Dates: start: 20100301
  3. IBUPROFEN [Concomitant]

REACTIONS (4)
  - NO THERAPEUTIC RESPONSE [None]
  - DYSPNOEA [None]
  - CHEST DISCOMFORT [None]
  - CHEST PAIN [None]
